FAERS Safety Report 22193815 (Version 2)
Quarter: 2023Q2

REPORT INFORMATION
  Report Type: Spontaneous
  Country: JP (occurrence: JP)
  Receive Date: 20230410
  Receipt Date: 20230522
  Transmission Date: 20230722
  Serious: Yes (Hospitalization, Other)
  Sender: FDA-Public Use
  Company Number: JP-MSD-M2023-13554

PATIENT
  Age: 72 Year
  Sex: Male

DRUGS (2)
  1. KEYTRUDA [Suspect]
     Active Substance: PEMBROLIZUMAB
     Indication: Renal cell carcinoma stage IV
     Dosage: 400 MILLIGRAM, EVERY 6 WEEKS
     Route: 041
  2. INLYTA [Concomitant]
     Active Substance: AXITINIB
     Dosage: UNK
     Route: 065

REACTIONS (1)
  - Immune-mediated encephalitis [Not Recovered/Not Resolved]

NARRATIVE: CASE EVENT DATE: 20230301
